FAERS Safety Report 7946773-2 (Version None)
Quarter: 2011Q4

REPORT INFORMATION
  Report Type: 
  Country: None (occurrence: None)
  Receive Date: 20111129
  Receipt Date: 20111121
  Transmission Date: 20120403
  Serious: Yes (Hospitalization, Other)
  Sender: FDA-Public Use
  Company Number: US-ABBOTT-11P-163-0845942-00

PATIENT
  Sex: Female
  Weight: 44.492 kg

DRUGS (3)
  1. PROZAC [Concomitant]
     Indication: DEPRESSION
  2. HUMIRA [Suspect]
     Indication: CROHN'S DISEASE
     Dates: start: 20110401
  3. IRON [Concomitant]
     Indication: MINERAL SUPPLEMENTATION

REACTIONS (6)
  - CONSTIPATION [None]
  - SMALL INTESTINAL OBSTRUCTION [None]
  - ABDOMINAL PAIN UPPER [None]
  - FLATULENCE [None]
  - LATEX ALLERGY [None]
  - VOMITING [None]
